FAERS Safety Report 6719986-5 (Version None)
Quarter: 2010Q2

REPORT INFORMATION
  Report Type: 
  Country: None (occurrence: None)
  Receive Date: 20100511
  Receipt Date: 20100428
  Transmission Date: 20101027
  Serious: Yes (Other)
  Sender: FDA-Public Use
  Company Number: JP-MERCK-1004USA04826

PATIENT
  Age: 59 Year
  Sex: Male
  Weight: 75 kg

DRUGS (14)
  1. JANUVIA [Suspect]
     Indication: DIABETES MELLITUS
     Route: 048
     Dates: start: 20100322, end: 20100402
  2. SEIROGAN [Suspect]
     Indication: DIARRHOEA
     Route: 048
     Dates: end: 20100402
  3. ADALAT CC [Concomitant]
     Indication: HYPERTENSION
     Route: 048
     Dates: start: 20090318, end: 20100402
  4. ADALAT CC [Concomitant]
     Route: 048
     Dates: start: 20100401
  5. BEZATOL SR [Concomitant]
     Indication: HYPERLIPIDAEMIA
     Route: 048
     Dates: start: 20090804, end: 20100402
  6. BEZATOL SR [Concomitant]
     Route: 048
     Dates: start: 20100401
  7. DOXAZOSIN MESYLATE [Concomitant]
     Indication: HYPERTENSION
     Route: 048
     Dates: start: 20100309, end: 20100402
  8. DOXAZOSIN MESYLATE [Concomitant]
     Route: 048
     Dates: start: 20100401
  9. DIOVAN [Concomitant]
     Indication: HYPERTENSION
     Route: 048
     Dates: start: 20090114, end: 20100402
  10. DIOVAN [Concomitant]
     Route: 048
     Dates: start: 20100401
  11. METFORMIN HCL [Concomitant]
     Indication: DIABETES MELLITUS
     Route: 048
     Dates: start: 20081210, end: 20100402
  12. METFORMIN HCL [Concomitant]
     Route: 048
     Dates: start: 20100401
  13. SEIBULE [Concomitant]
     Indication: DIABETES MELLITUS
     Route: 048
     Dates: start: 20090602, end: 20100321
  14. SEIBULE [Concomitant]
     Route: 048
     Dates: start: 20100401

REACTIONS (1)
  - DYSGEUSIA [None]
